FAERS Safety Report 9216897 (Version 2)
Quarter: 2013Q2

REPORT INFORMATION
  Report Type: Spontaneous
  Country: US (occurrence: US)
  Receive Date: 20130408
  Receipt Date: 20130419
  Transmission Date: 20140414
  Serious: No
  Sender: FDA-Public Use
  Company Number: US-PFIZER INC-2013106655

PATIENT
  Sex: Female

DRUGS (2)
  1. PROTONIX [Suspect]
     Dosage: UNK, 1X/DAY
  2. PROTONIX [Suspect]
     Dosage: 2 OR 3 TIMES A WEEK

REACTIONS (5)
  - Wrist fracture [Unknown]
  - Musculoskeletal discomfort [Unknown]
  - Pain [Unknown]
  - Fall [Unknown]
  - Intentional drug misuse [Unknown]
